FAERS Safety Report 25712502 (Version 1)
Quarter: 2025Q3

REPORT INFORMATION
  Report Type: Spontaneous
  Country: GB (occurrence: GB)
  Receive Date: 20250821
  Receipt Date: 20250821
  Transmission Date: 20251021
  Serious: Yes (Other)
  Sender: GILEAD
  Company Number: None

PATIENT
  Sex: Male

DRUGS (2)
  1. TRUVADA [Suspect]
     Active Substance: EMTRICITABINE\TENOFOVIR DISOPROXIL FUMARATE
     Indication: Product used for unknown indication
     Dosage: 200MG/245MG
     Route: 048
  2. RALTEGRAVIR [Concomitant]
     Active Substance: RALTEGRAVIR

REACTIONS (2)
  - Liver disorder [Unknown]
  - Renal disorder [Unknown]
